FAERS Safety Report 4284985-2 (Version None)
Quarter: 2004Q1

REPORT INFORMATION
  Report Type: 
  Country: None (occurrence: None)
  Receive Date: 20040202
  Receipt Date: 20040123
  Transmission Date: 20041129
  Serious: Yes (Hospitalization, Other)
  Sender: FDA-Public Use
  Company Number: 200400974

PATIENT
  Age: 10 Month
  Sex: Male
  Weight: 8.1 kg

DRUGS (2)
  1. CONCENTRATED TYLENOL INFANTS' DROPS (ACETAMINOPHEN 80 MG PER 0.8 ML) [Suspect]
     Indication: PAIN
     Dosage: 200 MG Q4H PO
     Route: 048
     Dates: start: 20040103, end: 20040107
  2. CONCENTRATED TYLENOL INFANTS' DROPS (ACETAMINOPHEN 80 MG PER 0.8 ML) [Suspect]
     Indication: PYREXIA
     Dosage: 200 MG Q4H PO
     Route: 048
     Dates: start: 20040103, end: 20040107

REACTIONS (7)
  - ALANINE AMINOTRANSFERASE INCREASED [None]
  - ASPARTATE AMINOTRANSFERASE INCREASED [None]
  - INTERNATIONAL NORMALISED RATIO INCREASED [None]
  - MEDICATION ERROR [None]
  - PRESCRIBED OVERDOSE [None]
  - PROTHROMBIN LEVEL INCREASED [None]
  - VOMITING [None]
